APPROVED DRUG PRODUCT: MEPERGAN
Active Ingredient: MEPERIDINE HYDROCHLORIDE; PROMETHAZINE HYDROCHLORIDE
Strength: 25MG/ML;25MG/ML
Dosage Form/Route: INJECTABLE;INJECTION
Application: N011730 | Product #001
Applicant: HIKMA PHARMACEUTICALS USA INC
Approved: Approved Prior to Jan 1, 1982 | RLD: No | RS: No | Type: DISCN